FAERS Safety Report 24044662 (Version 2)
Quarter: 2024Q3

REPORT INFORMATION
  Report Type: Spontaneous
  Country: CN (occurrence: CN)
  Receive Date: 20240703
  Receipt Date: 20240711
  Transmission Date: 20241017
  Serious: Yes (Other)
  Sender: ASTELLAS
  Company Number: CN-ASTELLAS-2024US018589

PATIENT
  Age: 9 Year
  Sex: Female
  Weight: 27 kg

DRUGS (3)
  1. ISAVUCONAZOLE [Suspect]
     Active Substance: ISAVUCONAZOLE
     Indication: Antifungal treatment
     Dosage: 4 MG/KG, THRICE DAILY (4 MG/KG(100MG), 3X/DAY) (EVERY 8 HOURS)
     Route: 041
     Dates: start: 20230413
  2. ISAVUCONAZOLE [Suspect]
     Active Substance: ISAVUCONAZOLE
     Dosage: 4 MG/KG, ONCE DAILY (4 MG/KG 1X/DAY)
     Route: 041
     Dates: start: 202304
  3. AMPHOTERICIN B CHOLESTERYL SULFATE [Concomitant]
     Active Substance: AMPHOTERICIN B CHOLESTERYL SULFATE
     Indication: Product used for unknown indication
     Dosage: 100 MG (4MG/KG), UNKNOWN FREQ.
     Route: 042
     Dates: start: 20230413

REACTIONS (2)
  - Blood calcium decreased [Unknown]
  - Vomiting [Recovering/Resolving]

NARRATIVE: CASE EVENT DATE: 20230401
